FAERS Safety Report 8198975-0 (Version None)
Quarter: 2012Q1

REPORT INFORMATION
  Report Type: 
  Country: None (occurrence: None)
  Receive Date: 20120309
  Receipt Date: 20120305
  Transmission Date: 20120608
  Serious: Yes (Death)
  Sender: FDA-Public Use
  Company Number: JP-BRACCO-005636

PATIENT
  Sex: Male
  Weight: 90 kg

DRUGS (12)
  1. ASPIRIN [Concomitant]
  2. IOPAMIDOL [Suspect]
     Indication: ARTERIOGRAM
     Route: 013
     Dates: start: 20120209, end: 20120209
  3. CARVEDILOL [Concomitant]
  4. IOPAMIDOL [Suspect]
     Indication: AORTIC ANEURYSM
     Route: 022
     Dates: start: 20120209, end: 20120209
  5. PLAVIX [Concomitant]
  6. LIPITOR [Concomitant]
  7. RABEPRAZOLE SODIUM [Concomitant]
  8. IOPAMIDOL [Suspect]
     Indication: COMPUTERISED TOMOGRAM
     Route: 042
     Dates: start: 20120209, end: 20120209
  9. IOPAMIDOL [Suspect]
     Indication: COMPUTERISED TOMOGRAM CORONARY ARTERY
     Route: 042
     Dates: start: 20120209, end: 20120209
  10. ISOSORBIDE MONONITRATE [Concomitant]
  11. JANUVIA [Concomitant]
  12. ENALAPRIL MALEATE [Concomitant]

REACTIONS (2)
  - ANAEMIA [None]
  - ANAPHYLACTIC SHOCK [None]
